FAERS Safety Report 6404903-8 (Version None)
Quarter: 2009Q4

REPORT INFORMATION
  Report Type: 
  Country: None (occurrence: None)
  Receive Date: 20091019
  Receipt Date: 20091007
  Transmission Date: 20100525
  Serious: Yes (Other)
  Sender: FDA-Public Use
  Company Number: US-JNJFOC-20091004105

PATIENT
  Age: 66 Year
  Sex: Male

DRUGS (3)
  1. INFLIXIMAB [Suspect]
     Indication: RHEUMATOID ARTHRITIS
     Dosage: 5 DOSES IN 6 MONTHS
     Route: 042
  2. METHOTREXATE [Suspect]
     Indication: RHEUMATOID ARTHRITIS
  3. PREDNISONE TAB [Suspect]
     Indication: RHEUMATOID ARTHRITIS

REACTIONS (2)
  - IMMUNE RECONSTITUTION SYNDROME [None]
  - MYCOBACTERIUM MARINUM INFECTION [None]
